FAERS Safety Report 6988665-1 (Version None)
Quarter: 2010Q3

REPORT INFORMATION
  Report Type: 
  Country: None (occurrence: None)
  Receive Date: 20100916
  Receipt Date: 20100910
  Transmission Date: 20110219
  Serious: Yes (Other)
  Sender: FDA-Public Use
  Company Number: US-BAYER-201019938BCC

PATIENT
  Age: 73 Year
  Sex: Female
  Weight: 79 kg

DRUGS (5)
  1. ALEVE (CAPLET) [Suspect]
     Indication: PAIN
     Dosage: 220 TO 440 MG
     Route: 048
     Dates: start: 20100802
  2. CENTRUM [Concomitant]
     Route: 065
  3. BAYER ENTERIC COATED [Concomitant]
     Route: 065
  4. MAGNESIUM [Concomitant]
     Route: 065
  5. FOLIC ACID [Concomitant]
     Route: 065

REACTIONS (2)
  - BLOOD PRESSURE INCREASED [None]
  - HEADACHE [None]
